FAERS Safety Report 7141715-4 (Version None)
Quarter: 2010Q4

REPORT INFORMATION
  Report Type: 
  Country: None (occurrence: None)
  Receive Date: 20101207
  Receipt Date: 20101201
  Transmission Date: 20110411
  Serious: Yes (Other)
  Sender: FDA-Public Use
  Company Number: US-GENZYME-FABR-1001649

PATIENT

DRUGS (7)
  1. FABRAZYME [Suspect]
     Indication: FABRY'S DISEASE
     Dosage: 105 MG, UNK
     Route: 042
     Dates: start: 20101124
  2. FABRAZYME [Suspect]
     Dosage: 105 MG, Q2W
     Route: 042
     Dates: start: 20051105, end: 20091021
  3. FABRAZYME [Suspect]
     Dosage: 70 MG, UNK
     Route: 042
     Dates: start: 20091021, end: 20091204
  4. FABRAZYME [Suspect]
     Dosage: 35 MG, Q2W
     Route: 042
     Dates: start: 20100113, end: 20100322
  5. FABRAZYME [Suspect]
     Dosage: 55 MG, Q2W
     Route: 042
     Dates: start: 20100409, end: 20100423
  6. FABRAZYME [Suspect]
     Dosage: 35 MG, UNK
     Route: 042
     Dates: start: 20100513, end: 20100913
  7. FABRAZYME [Suspect]
     Dosage: 70 MG, Q2W
     Route: 042
     Dates: start: 20100930, end: 20101025

REACTIONS (1)
  - ABDOMINAL HERNIA [None]
